FAERS Safety Report 8955765 (Version 1)
Quarter: 2012Q4

REPORT INFORMATION
  Report Type: 
  Country: MX (occurrence: MX)
  Receive Date: 20121210
  Receipt Date: 20121210
  Transmission Date: 20130627
  Serious: Yes (Hospitalization)
  Sender: FDA-Public Use
  Company Number: MX-SANOFI-AVENTIS-2012SA088396

PATIENT
  Age: 72 Year
  Sex: Female

DRUGS (3)
  1. ARAVA [Suspect]
     Indication: RHEUMATOID ARTHRITIS
     Dosage: strength: 20 mg
     Route: 048
     Dates: start: 2002
  2. LOSARTAN [Concomitant]
     Indication: HYPERTENSION ARTERIAL
     Dosage: strength: 50 mg
     Route: 048
  3. ESOMEPRAZOLE [Concomitant]
     Indication: GASTRIC ULCER PROPHYLAXIS
     Route: 048
     Dates: start: 2000

REACTIONS (2)
  - Fall [Unknown]
  - Femur fracture [Recovered/Resolved]
